FAERS Safety Report 5133065-2 (Version None)
Quarter: 2006Q4

REPORT INFORMATION
  Report Type: 
  Country: None (occurrence: None)
  Receive Date: 20061018
  Receipt Date: 20061011
  Transmission Date: 20070319
  Serious: Yes (Hospitalization, Other)
  Sender: FDA-Public Use
  Company Number: HQWYE946011OCT06

PATIENT
  Age: 8 Month
  Sex: Male

DRUGS (3)
  1. INDERAL [Suspect]
     Indication: SUPRAVENTRICULAR TACHYCARDIA
     Dosage: 20 MG
  2. TIMOLOL MALEATE [Suspect]
     Dosage: 0.5%, 2 DROPS INTRANASAL
     Route: 045
  3. SODIUM CHLORIDE 0.9% [Concomitant]

REACTIONS (15)
  - ACCIDENTAL DRUG INTAKE BY CHILD [None]
  - BRADYCARDIA [None]
  - BRADYPNOEA [None]
  - DRUG ADMINISTRATION ERROR [None]
  - DRUG INTERACTION [None]
  - FLOPPY INFANT [None]
  - HYPOTENSION [None]
  - HYPOTONIC-HYPORESPONSIVE EPISODE [None]
  - LETHARGY [None]
  - METABOLIC ACIDOSIS [None]
  - MIOSIS [None]
  - MOVEMENT DISORDER [None]
  - PERIPHERAL COLDNESS [None]
  - PULSE ABNORMAL [None]
  - RESPIRATORY RATE DECREASED [None]
